FAERS Safety Report 21949404 (Version 1)
Quarter: 2023Q1

REPORT INFORMATION
  Report Type: Spontaneous
  Country: US (occurrence: None)
  Receive Date: 20230202
  Receipt Date: 20230202
  Transmission Date: 20230417
  Serious: Yes (Hospitalization)
  Sender: FDA-Public Use
  Company Number: None

PATIENT
  Sex: Male
  Weight: 58.06 kg

DRUGS (10)
  1. ERLEADA [Suspect]
     Active Substance: APALUTAMIDE
     Indication: Renal disorder
     Dosage: FREQUENCY : DAILY;?
     Route: 048
     Dates: start: 202301
  2. ALBUTEROL [Concomitant]
     Active Substance: ALBUTEROL
  3. AMIODARONE [Concomitant]
     Active Substance: AMIODARONE
  4. ASPIRIN [Concomitant]
     Active Substance: ASPIRIN
  5. ATORVASTATIN [Concomitant]
     Active Substance: ATORVASTATIN
  6. CARVEDILOL [Concomitant]
     Active Substance: CARVEDILOL
  7. CASODEX [Concomitant]
     Active Substance: BICALUTAMIDE
  8. GABAPENTIN [Concomitant]
     Active Substance: GABAPENTIN
  9. NIFEDIPINE [Concomitant]
     Active Substance: NIFEDIPINE
  10. SENOKOT [Concomitant]
     Active Substance: SENNOSIDES

REACTIONS (1)
  - Hospitalisation [None]
